FAERS Safety Report 9791595 (Version 2)
Quarter: 2014Q1

REPORT INFORMATION
  Report Type: Report from Study
  Country: GE (occurrence: GE)
  Receive Date: 20140102
  Receipt Date: 20140102
  Transmission Date: 20141002
  Serious: Yes (Other)
  Sender: FDA-Public Use
  Company Number: GE-ROCHE-1006651

PATIENT
  Age: 42 Year
  Sex: Male
  Weight: 97 kg

DRUGS (4)
  1. PEG-INTERFERON ALFA 2A [Suspect]
     Indication: HEPATITIS C
     Route: 058
     Dates: start: 20110623, end: 20111020
  2. PEG-INTERFERON ALFA 2A [Suspect]
     Route: 058
     Dates: start: 20111103
  3. RIBAVIRIN [Suspect]
     Indication: HEPATITIS C
     Route: 048
     Dates: start: 20110623, end: 20111020
  4. RIBAVIRIN [Suspect]
     Route: 048
     Dates: start: 20111103

REACTIONS (2)
  - Pneumonia [Recovered/Resolved]
  - Pleurisy [Recovered/Resolved]
